FAERS Safety Report 12916997 (Version 1)
Quarter: 2016Q4

REPORT INFORMATION
  Report Type: Spontaneous
  Country: US (occurrence: US)
  Receive Date: 20161107
  Receipt Date: 20161107
  Transmission Date: 20170207
  Serious: No
  Sender: FDA-Public Use
  Company Number: US-BAYER-2016-208086

PATIENT

DRUGS (16)
  1. ALEVE [Suspect]
     Active Substance: NAPROXEN SODIUM
     Indication: PRODUCT USED FOR UNKNOWN INDICATION
     Dosage: UNK
  2. BAYER GENUINE ASPIRIN [Suspect]
     Active Substance: ASPIRIN
  3. ACETAMINOPHEN AND CODEINE [Concomitant]
     Active Substance: ACETAMINOPHEN\CODEINE PHOSPHATE
     Indication: PAIN
     Dosage: 1 DF TID, PRN
     Dates: start: 20160525
  4. ALBUTEROL. [Concomitant]
     Active Substance: ALBUTEROL
     Indication: DYSPNOEA
     Dosage: 1-2 PUFIS Q4-6, PRN
     Dates: start: 20160725
  5. CRESTOR [Concomitant]
     Active Substance: ROSUVASTATIN CALCIUM
     Dosage: 1 DF, QD
     Route: 048
     Dates: start: 20150901
  6. LYRICA [Concomitant]
     Active Substance: PREGABALIN
     Dosage: 75 MG, TID
     Route: 048
     Dates: start: 20160725
  7. METFORMIN HCL [Concomitant]
     Active Substance: METFORMIN HYDROCHLORIDE
     Dosage: 500 MG, QD
     Route: 048
     Dates: start: 20150901
  8. AVODART [Concomitant]
     Active Substance: DUTASTERIDE
     Dosage: 1 DF, QD
     Route: 048
     Dates: start: 20160722
  9. LISINOPRIL. [Concomitant]
     Active Substance: LISINOPRIL
     Dosage: 20 MG, QD
     Dates: start: 20160504
  10. AMITRIPTYLINE HCL [Concomitant]
     Active Substance: AMITRIPTYLINE
     Dosage: 1 DF, HS
     Dates: start: 20150902
  11. CLONAZEPAM. [Concomitant]
     Active Substance: CLONAZEPAM
     Dosage: 1 DF BID, PRN
     Route: 048
     Dates: start: 20160522
  12. GABAPENTIN. [Concomitant]
     Active Substance: GABAPENTIN
     Dosage: 3 DF, TID
     Route: 048
     Dates: start: 20150902
  13. LISINOPRIL. [Concomitant]
     Active Substance: LISINOPRIL
     Dosage: 20 MG, QD
     Route: 048
     Dates: start: 20160525
  14. NASONEX [Concomitant]
     Active Substance: MOMETASONE FUROATE
     Dosage: 2 DF (SPRAY), QD IN EACH NOSTRIL
     Route: 045
  15. SYMBICORT [Concomitant]
     Active Substance: BUDESONIDE\FORMOTEROL FUMARATE DIHYDRATE
     Dosage: 2 PUFFS, BID RINSE MOUTH AFTER USE
     Route: 045
     Dates: start: 20160725
  16. MONTELUKAST SODIUM. [Concomitant]
     Active Substance: MONTELUKAST SODIUM
     Dosage: 10 MG, QD
     Route: 048
     Dates: start: 20160322

REACTIONS (2)
  - Drug hypersensitivity [None]
  - Drug hypersensitivity [Unknown]
